FAERS Safety Report 4344907-2 (Version None)
Quarter: 2004Q2

REPORT INFORMATION
  Report Type: 
  Country: None (occurrence: None)
  Receive Date: 20040420
  Receipt Date: 20040406
  Transmission Date: 20050107
  Serious: Yes (Other)
  Sender: FDA-Public Use
  Company Number: 200410362BVD

PATIENT
  Age: 61 Year
  Sex: Female
  Weight: 87 kg

DRUGS (6)
  1. ASPIRIN [Suspect]
     Dosage: 500 MG, TOTAL DAILY, ORAL
     Route: 048
     Dates: start: 20040123, end: 20040125
  2. BISOPROLOL [Concomitant]
  3. REMIFEMIN [Concomitant]
  4. CORTISONE ACETATE [Concomitant]
  5. VITAMINS NOS [Concomitant]
  6. MODURETIC 5-50 [Concomitant]

REACTIONS (1)
  - IDIOPATHIC THROMBOCYTOPENIC PURPURA [None]
